FAERS Safety Report 21216689 (Version 1)
Quarter: 2022Q3

REPORT INFORMATION
  Report Type: Spontaneous
  Country: US (occurrence: None)
  Receive Date: 20220816
  Receipt Date: 20220816
  Transmission Date: 20221027
  Serious: No
  Sender: FDA-Public Use
  Company Number: 2022A262997

PATIENT
  Sex: Female

DRUGS (1)
  1. SYMBICORT [Suspect]
     Active Substance: BUDESONIDE\FORMOTEROL FUMARATE DIHYDRATE
     Indication: Asthma
     Dosage: 160/4.5MCG, ONCE A DAY
     Route: 055
     Dates: start: 2022

REACTIONS (10)
  - Fear of death [Unknown]
  - Asthma [Unknown]
  - Chest pain [Unknown]
  - Pain [Unknown]
  - Bladder prolapse [Unknown]
  - Palpitations [Unknown]
  - Feeling jittery [Unknown]
  - Dizziness [Unknown]
  - Headache [Unknown]
  - Device use issue [Unknown]
